FAERS Safety Report 9270030 (Version 1)
Quarter: 2013Q2

REPORT INFORMATION
  Report Type: Spontaneous
  Country: US (occurrence: US)
  Receive Date: 20130503
  Receipt Date: 20130503
  Transmission Date: 20140414
  Serious: Yes (Life-Threatening, Hospitalization)
  Sender: FDA-Public Use
  Company Number: US-JNJFOC-20130500856

PATIENT
  Age: 79 Year
  Sex: Female
  Weight: 87.6 kg

DRUGS (2)
  1. XARELTO [Suspect]
     Indication: THROMBOSIS PROPHYLAXIS
     Dosage: NDC# 5045858010
     Route: 048
     Dates: start: 20130219, end: 20130222
  2. XARELTO [Suspect]
     Indication: KNEE OPERATION
     Dosage: NDC# 5045858010
     Route: 048
     Dates: start: 20130219, end: 20130222

REACTIONS (1)
  - Pulmonary embolism [Unknown]
